FAERS Safety Report 16952856 (Version 1)
Quarter: 2019Q4

REPORT INFORMATION
  Report Type: Spontaneous
  Country: US (occurrence: US)
  Receive Date: 20191023
  Receipt Date: 20191023
  Transmission Date: 20200122
  Serious: Yes (Death)
  Sender: FDA-Public Use
  Company Number: US-ROCHE-2449430

PATIENT
  Sex: Female
  Weight: 105.78 kg

DRUGS (1)
  1. XELODA [Suspect]
     Active Substance: CAPECITABINE
     Indication: COLON CANCER
     Dosage: EVERY 12 HOURS FOR 14 DAYS. REPEAT AFTER EVERY 21 DAYS.
     Route: 048
     Dates: start: 20190918

REACTIONS (1)
  - Death [Fatal]
